FAERS Safety Report 10455403 (Version 1)
Quarter: 2014Q3

REPORT INFORMATION
  Report Type: Spontaneous
  Country: US (occurrence: None)
  Receive Date: 20140915
  Receipt Date: 20140915
  Transmission Date: 20150326
  Serious: Yes (Disabling, Other)
  Sender: FDA-Public Use
  Company Number: None

PATIENT
  Age: 57 Year
  Sex: Female
  Weight: 58.97 kg

DRUGS (2)
  1. MOVIPREP [Suspect]
     Active Substance: ASCORBIC ACID\POLYETHYLENE GLYCOL 3350\POTASSIUM CHLORIDE\SODIUM ASCORBATE\SODIUM CHLORIDE\SODIUM SULFATE
     Indication: COLONOSCOPY
     Dosage: ONE POUCH A + B ONCE DAILY TAKEN BY MOUTH
     Route: 048
     Dates: start: 20140910, end: 20140910
  2. MOVIPREP [Suspect]
     Active Substance: ASCORBIC ACID\POLYETHYLENE GLYCOL 3350\POTASSIUM CHLORIDE\SODIUM ASCORBATE\SODIUM CHLORIDE\SODIUM SULFATE
     Indication: BOWEL PREPARATION
     Dosage: ONE POUCH A + B ONCE DAILY TAKEN BY MOUTH
     Route: 048
     Dates: start: 20140910, end: 20140910

REACTIONS (7)
  - Fall [None]
  - Abdominal distension [None]
  - Nausea [None]
  - Vomiting [None]
  - Mucous stools [None]
  - Vertigo [None]
  - Abdominal pain [None]

NARRATIVE: CASE EVENT DATE: 20140910
